FAERS Safety Report 24096514 (Version 2)
Quarter: 2024Q3

REPORT INFORMATION
  Report Type: Report from Study
  Country: AR (occurrence: AR)
  Receive Date: 20240716
  Receipt Date: 20240805
  Transmission Date: 20241016
  Serious: Yes (Other)
  Sender: SANDOZ
  Company Number: AR-002147023-NVSC2022AR163889

PATIENT
  Age: 54 Year
  Sex: Male

DRUGS (1)
  1. ERELZI [Suspect]
     Active Substance: ETANERCEPT-SZZS
     Indication: Psoriasis
     Dosage: 50 MG, QW
     Route: 058
     Dates: start: 20210704

REACTIONS (6)
  - Leukaemia [Unknown]
  - Leukaemia [Unknown]
  - Contusion [Unknown]
  - Psoriasis [Recovered/Resolved]
  - Rash [Unknown]
  - Product supply issue [Unknown]

NARRATIVE: CASE EVENT DATE: 20240201
